FAERS Safety Report 10684753 (Version 1)
Quarter: 2014Q4

REPORT INFORMATION
  Report Type: Spontaneous
  Country: US (occurrence: US)
  Receive Date: 20141231
  Receipt Date: 20141231
  Transmission Date: 20150529
  Serious: Yes (Other)
  Sender: FDA-Public Use
  Company Number: US-ELI_LILLY_AND_COMPANY-US201412009866

PATIENT
  Sex: Female

DRUGS (2)
  1. FLEXERIL [Concomitant]
     Active Substance: CYCLOBENZAPRINE HYDROCHLORIDE
  2. CYMBALTA [Suspect]
     Active Substance: DULOXETINE HYDROCHLORIDE
     Indication: FIBROMYALGIA
     Dosage: 20 MG, QD
     Route: 048
     Dates: start: 20141222, end: 20141222

REACTIONS (11)
  - Anxiety [Unknown]
  - Nausea [Unknown]
  - Vision blurred [Recovering/Resolving]
  - Hyperhidrosis [Recovering/Resolving]
  - Blood pressure increased [Recovering/Resolving]
  - Heart rate increased [Recovered/Resolved]
  - Hallucination [Unknown]
  - Feeling hot [Recovering/Resolving]
  - Vomiting [Unknown]
  - Dizziness [Unknown]
  - Decreased appetite [Unknown]

NARRATIVE: CASE EVENT DATE: 20141222
